FAERS Safety Report 23159278 (Version 5)
Quarter: 2024Q2

REPORT INFORMATION
  Report Type: Spontaneous
  Country: CA (occurrence: CA)
  Receive Date: 20231108
  Receipt Date: 20240507
  Transmission Date: 20240716
  Serious: Yes (Other)
  Sender: FDA-Public Use
  Company Number: CA-PFIZER INC-202201067885

PATIENT
  Age: 40 Year
  Sex: Female

DRUGS (4)
  1. ABRILADA [Suspect]
     Active Substance: ADALIMUMAB-AFZB
     Indication: Crohn^s disease
     Dosage: 1 DF, 160 MG WEEK 0, 80 MG WEEK 2 THEN 40 MG EVERY 2 WEEKS - PREFILLED PEN
     Route: 058
     Dates: start: 20220601
  2. CANNABIS SATIVA SUBSP. INDICA TOP [Concomitant]
     Active Substance: CANNABIS SATIVA SUBSP. INDICA TOP
     Dosage: UNK, DAILY (1 TO 2 GRAMS OF CANNABIS PER DAY)
  3. FENTANYL [Concomitant]
     Active Substance: FENTANYL\FENTANYL CITRATE
     Dosage: UNK (METHAMPHETAMINE HEAVILY CONTAMINATED WITH FENTANYL)
  4. METHAMPHETAMINE [Concomitant]
     Active Substance: METHAMPHETAMINE
     Dosage: UNK (20 TO 30 TABLETS OF METHAMPHETAMINE PER 24 HOURS)

REACTIONS (37)
  - Crohn^s disease [Not Recovered/Not Resolved]
  - Glaucoma [Unknown]
  - Product dose omission issue [Unknown]
  - Discouragement [Unknown]
  - Influenza [Not Recovered/Not Resolved]
  - Mouth ulceration [Not Recovered/Not Resolved]
  - Gastrointestinal disorder [Not Recovered/Not Resolved]
  - Arthralgia [Not Recovered/Not Resolved]
  - Back pain [Not Recovered/Not Resolved]
  - Epicondylitis [Unknown]
  - Carpal tunnel syndrome [Unknown]
  - Cyst [Unknown]
  - Nerve injury [Unknown]
  - Loss of personal independence in daily activities [Unknown]
  - Skin papilloma [Unknown]
  - Gait disturbance [Unknown]
  - Pain in extremity [Unknown]
  - Nail deformation [Not Recovered/Not Resolved]
  - Rash [Unknown]
  - Synovial cyst [Unknown]
  - Condition aggravated [Unknown]
  - Vaginal haemorrhage [Unknown]
  - Abscess [Unknown]
  - Fatigue [Unknown]
  - Dyspnoea [Unknown]
  - Peripheral swelling [Unknown]
  - Joint swelling [Unknown]
  - Vibration syndrome [Unknown]
  - Generalised anxiety disorder [Not Recovered/Not Resolved]
  - Depression [Unknown]
  - Behaviour disorder [Unknown]
  - Aphonia [Unknown]
  - Nasal dryness [Unknown]
  - Epistaxis [Unknown]
  - Rhinorrhoea [Unknown]
  - Nasal crusting [Unknown]
  - Pain [Unknown]

NARRATIVE: CASE EVENT DATE: 20220101
